FAERS Safety Report 9855340 (Version 1)
Quarter: 2014Q1

REPORT INFORMATION
  Report Type: Spontaneous
  Country: CH (occurrence: CH)
  Receive Date: 20140130
  Receipt Date: 20140130
  Transmission Date: 20141002
  Serious: Yes (Hospitalization)
  Sender: FDA-Public Use
  Company Number: CH-ELI_LILLY_AND_COMPANY-CH201401008428

PATIENT
  Age: 83 Year
  Sex: Male
  Weight: 65 kg

DRUGS (3)
  1. EFIENT [Suspect]
     Indication: STENT PLACEMENT
     Dosage: 60 MG, UNK
     Route: 048
     Dates: start: 20120109, end: 20120109
  2. EFIENT [Suspect]
     Dosage: 5 MG, QD
     Route: 048
     Dates: start: 20120110, end: 20121222
  3. ASPIRIN [Concomitant]

REACTIONS (3)
  - Intestinal infarction [Recovered/Resolved]
  - Ileus [Recovered/Resolved]
  - Haemorrhage [Recovered/Resolved]
